FAERS Safety Report 18893101 (Version 1)
Quarter: 2021Q1

REPORT INFORMATION
  Report Type: Spontaneous
  Country: US (occurrence: US)
  Receive Date: 20210215
  Receipt Date: 20210215
  Transmission Date: 20210420
  Serious: Yes (Other)
  Sender: FDA-Public Use
  Company Number: US-JNJFOC-20210212065

PATIENT
  Age: 64 Year
  Sex: Female

DRUGS (1)
  1. SPRAVATO [Suspect]
     Active Substance: ESKETAMINE
     Indication: MAJOR DEPRESSION

REACTIONS (4)
  - Blood pressure decreased [Unknown]
  - Visual impairment [Unknown]
  - Vision blurred [Unknown]
  - Blindness transient [Unknown]

NARRATIVE: CASE EVENT DATE: 20210205
